FAERS Safety Report 5511631-X (Version None)
Quarter: 2007Q4

REPORT INFORMATION
  Report Type: 
  Country: None (occurrence: None)
  Receive Date: 20071109
  Receipt Date: 20071102
  Transmission Date: 20080405
  Serious: Yes (Life-Threatening, Hospitalization)
  Sender: FDA-Public Use
  Company Number: PFIZER INC-001-0184-M0000026

PATIENT
  Age: 57 Year
  Sex: Female

DRUGS (7)
  1. NEURONTIN [Suspect]
  2. BENADRYL [Suspect]
  3. REMERON [Suspect]
     Dosage: DAILY DOSE:225MG-FREQ:UNK
     Route: 048
  4. PROZAC [Suspect]
  5. UNISOM [Suspect]
  6. TRICOR [Concomitant]
  7. LIPITOR [Concomitant]

REACTIONS (3)
  - COMA [None]
  - INTENTIONAL OVERDOSE [None]
  - SUICIDE ATTEMPT [None]
